FAERS Safety Report 6926381-2 (Version None)
Quarter: 2010Q3

REPORT INFORMATION
  Report Type: 
  Country: None (occurrence: None)
  Receive Date: 20100816
  Receipt Date: 20100809
  Transmission Date: 20110219
  Serious: Yes (Death, Hospitalization, Other)
  Sender: FDA-Public Use
  Company Number: PHHY2010US48817

PATIENT
  Sex: Female

DRUGS (11)
  1. RECLAST [Suspect]
     Indication: OSTEOPOROSIS POSTMENOPAUSAL
     Dosage: 5 MG
     Route: 042
     Dates: start: 20100707
  2. TOPROL-XL [Concomitant]
     Dosage: 100 QD
  3. COZAAR [Concomitant]
     Dosage: 100 QD
  4. CELEBREX [Concomitant]
     Dosage: 200 QD
  5. PLAVIX [Concomitant]
     Dosage: 75 QD
  6. ASPIRIN [Concomitant]
  7. VESICARE [Concomitant]
     Dosage: 4 QD
  8. ZOCOR [Concomitant]
     Dosage: 80 QD
  9. CITRACAL [Concomitant]
  10. BYSTOLIC [Concomitant]
     Dosage: 10 QD
  11. FISH OIL [Concomitant]

REACTIONS (7)
  - BACK PAIN [None]
  - DEATH [None]
  - DIPLOPIA [None]
  - HEADACHE [None]
  - NECK PAIN [None]
  - PARAESTHESIA [None]
  - VISION BLURRED [None]
